FAERS Safety Report 25255860 (Version 1)
Quarter: 2025Q2

REPORT INFORMATION
  Report Type: Spontaneous
  Country: US (occurrence: US)
  Receive Date: 20250430
  Receipt Date: 20250430
  Transmission Date: 20250717
  Serious: No
  Sender: DBL GROUP
  Company Number: US-DBL Pharmaceuticals, Inc.-2175895

PATIENT

DRUGS (1)
  1. METHOCARBAMOL [Suspect]
     Active Substance: METHOCARBAMOL
     Indication: Restless legs syndrome

REACTIONS (1)
  - Drug ineffective for unapproved indication [Unknown]
